FAERS Safety Report 7878655-9 (Version None)
Quarter: 2011Q4

REPORT INFORMATION
  Report Type: 
  Country: None (occurrence: None)
  Receive Date: 20111028
  Receipt Date: 20111012
  Transmission Date: 20120403
  Serious: Yes (Hospitalization)
  Sender: FDA-Public Use
  Company Number: CIO11011067

PATIENT
  Age: 42 Year
  Sex: Female
  Weight: 96.3 kg

DRUGS (5)
  1. METAMUCIL-2 [Suspect]
     Indication: BOWEL MOVEMENT IRREGULARITY
     Dosage: 1 CAPSUL, 1/DAY, ORAL
     Route: 048
     Dates: start: 20101101, end: 20110213
  2. MORPHINE [Concomitant]
  3. ZOLOFT [Concomitant]
  4. ORAL CONTRACEPTIVE NOS (ORAL CONTRACEPTIVE NOS) [Concomitant]
  5. AMITRIPTYLINE HCL [Concomitant]

REACTIONS (17)
  - EOSINOPHIL COUNT INCREASED [None]
  - BLOOD PRESSURE INCREASED [None]
  - NON-CARDIAC CHEST PAIN [None]
  - BLOOD CREATINE PHOSPHOKINASE DECREASED [None]
  - SINUS BRADYCARDIA [None]
  - DISCOMFORT [None]
  - WHITE BLOOD CELL COUNT INCREASED [None]
  - DYSPNOEA [None]
  - VOMITING [None]
  - MEAN PLATELET VOLUME INCREASED [None]
  - ASTHENIA [None]
  - PAIN [None]
  - NAUSEA [None]
  - BLOOD CREATINE PHOSPHOKINASE INCREASED [None]
  - FEELING HOT [None]
  - INTERNATIONAL NORMALISED RATIO DECREASED [None]
  - CHEST DISCOMFORT [None]
